FAERS Safety Report 10090162 (Version 1)
Quarter: 2014Q2

REPORT INFORMATION
  Report Type: Spontaneous
  Country: US (occurrence: None)
  Receive Date: 20140410
  Receipt Date: 20140410
  Transmission Date: 20141212
  Serious: Yes (Hospitalization)
  Sender: FDA-Public Use
  Company Number: 1263685

PATIENT
  Sex: Female

DRUGS (4)
  1. ROCEPHIN [Suspect]
     Indication: PRODUCT USED FOR UNKNOWN INDICATION
  2. MESALAMINE (MESALAZINE) [Concomitant]
  3. PANTOPRAZOLE (PANTROPRAZOLE) [Concomitant]
  4. METRONIDAZOLE(METRONIDAZOLE) [Concomitant]

REACTIONS (1)
  - Rash [None]
